FAERS Safety Report 4959016-9 (Version None)
Quarter: 2006Q1

REPORT INFORMATION
  Report Type: 
  Country: None (occurrence: None)
  Receive Date: 20060328
  Receipt Date: 20060317
  Transmission Date: 20060701
  Serious: Yes (Other)
  Sender: FDA-Public Use
  Company Number: HQWYE127322DEC05

PATIENT
  Sex: Male

DRUGS (5)
  1. EFFEXOR XR [Suspect]
     Indication: STRESS
     Dosage: SEE IMAGE
     Route: 048
     Dates: start: 20060224, end: 20060101
  2. EFFEXOR XR [Suspect]
     Indication: STRESS
     Dosage: SEE IMAGE
     Route: 048
     Dates: start: 20021101, end: 20060223
  3. EFFEXOR XR [Suspect]
     Indication: STRESS
     Dosage: SEE IMAGE
     Route: 048
     Dates: start: 20060101
  4. MIRTAZAPINE [Concomitant]
  5. ALPRAZOLAM [Concomitant]

REACTIONS (7)
  - ANXIETY [None]
  - CAROTID ARTERY DISSECTION [None]
  - CONDITION AGGRAVATED [None]
  - DEPRESSION [None]
  - DRUG EFFECT DECREASED [None]
  - HYPERTENSION [None]
  - STRESS [None]
